FAERS Safety Report 9494017 (Version 1)
Quarter: 2013Q3

REPORT INFORMATION
  Report Type: Spontaneous
  Country: None (occurrence: US)
  Receive Date: 20130903
  Receipt Date: 20130903
  Transmission Date: 20140515
  Serious: Yes (Other)
  Sender: FDA-Public Use
  Company Number: US-BRISTOL-MYERS SQUIBB COMPANY-19211747

PATIENT
  Sex: 0

DRUGS (2)
  1. ABILIFY TABS [Suspect]
     Dates: start: 2008
  2. CORTISONE [Suspect]
     Dates: start: 201308

REACTIONS (1)
  - Mania [Unknown]
